FAERS Safety Report 9817106 (Version 6)
Quarter: 2014Q1

REPORT INFORMATION
  Report Type: Spontaneous
  Country: GB (occurrence: GB)
  Receive Date: 20140114
  Receipt Date: 20140321
  Transmission Date: 20141002
  Serious: Yes (Hospitalization, Other)
  Sender: FDA-Public Use
  Company Number: PHFR2013GB003294

PATIENT
  Age: 25 Year
  Sex: Male
  Weight: 58 kg

DRUGS (9)
  1. CLOZARIL [Suspect]
     Indication: SCHIZOPHRENIA
     Dosage: 625 MG,
     Route: 048
     Dates: start: 201006
  2. CLOZARIL [Suspect]
     Indication: PSYCHOTIC DISORDER
     Dosage: 775 MG, DAILY (350 MG MORNING, 425 MG NIGHT)
     Route: 048
     Dates: start: 2010
  3. CLOZARIL [Suspect]
     Dosage: UNK
     Route: 048
     Dates: start: 20120517, end: 20140108
  4. SODIUM VALPROATE [Concomitant]
     Indication: AFFECTIVE DISORDER
     Dosage: 750 MG, UNK
     Route: 048
  5. SODIUM VALPROATE [Concomitant]
     Dosage: 800 MG, DAILY (750 MG MORNING, 50 MG NIGHT)
     Route: 048
  6. LAMOTRIGINE [Concomitant]
     Indication: MOOD SWINGS
     Dosage: 75 MG, UNK
     Route: 048
  7. LAMOTRIGINE [Concomitant]
     Indication: SCHIZOAFFECTIVE DISORDER
     Dosage: 175 MG, DAILY (100 MG MORNING, 75 MG NIGHT)
     Route: 048
     Dates: end: 20140113
  8. FERROUS SULPHATE [Concomitant]
     Dosage: 200 MG, BID
     Route: 048
  9. PROMETHAZINE HYDROCHLORIDE [Concomitant]
     Dosage: 25 MG, DAILY (TEA TIME)

REACTIONS (8)
  - Cellulitis [Recovering/Resolving]
  - White blood cell count increased [Recovered/Resolved]
  - Neutrophil count increased [Recovered/Resolved]
  - Blood creatinine increased [Unknown]
  - Differential white blood cell count abnormal [Recovered/Resolved]
  - White blood cell count decreased [Recovered/Resolved]
  - Neutrophil count decreased [Recovered/Resolved]
  - Platelet count decreased [Not Recovered/Not Resolved]
